FAERS Safety Report 15152453 (Version 6)
Quarter: 2021Q4

REPORT INFORMATION
  Report Type: Other
  Country: IT (occurrence: FR)
  Receive Date: 20180717
  Receipt Date: 20211007
  Transmission Date: 20220303
  Serious: Yes (Hospitalization, Other)
  Sender: FDA-Public Use
  Company Number: FR-SA-2017SA123949

PATIENT
  Age: 43 Year
  Sex: Male

DRUGS (37)
  1. SULFAMETHOXAZOLE\TRIMETHOPRIM [Suspect]
     Active Substance: SULFAMETHOXAZOLE\TRIMETHOPRIM
     Indication: Pneumocystis jirovecii pneumonia
     Route: 048
     Dates: start: 201703, end: 20170526
  2. GANCICLOVIR [Suspect]
     Active Substance: GANCICLOVIR
     Indication: Prophylaxis
     Route: 042
     Dates: start: 20170330, end: 20170504
  3. MYCOPHENOLATE MOFETIL [Suspect]
     Active Substance: MYCOPHENOLATE MOFETIL
     Indication: Prophylaxis against transplant rejection
     Route: 048
     Dates: start: 2017
  4. ACUPAN [Suspect]
     Active Substance: NEFOPAM HYDROCHLORIDE
     Indication: Pain
     Route: 042
     Dates: start: 2017
  5. VALACYCLOVIR HYDROCHLORIDE [Suspect]
     Active Substance: VALACYCLOVIR HYDROCHLORIDE
     Indication: Prophylaxis
     Route: 048
     Dates: start: 20170504
  6. LINEZOLID [Suspect]
     Active Substance: LINEZOLID
     Indication: Product used for unknown indication
     Route: 042
     Dates: start: 201703, end: 20170430
  7. PHLOROGLUCINOL\1,3,5-TRIMETHOXYBENZENE [Suspect]
     Active Substance: PHLOROGLUCINOL\1,3,5-TRIMETHOXYBENZENE
     Indication: Pain
     Route: 048
     Dates: start: 2017
  8. PHLOROGLUCINOL\1,3,5-TRIMETHOXYBENZENE [Suspect]
     Active Substance: PHLOROGLUCINOL\1,3,5-TRIMETHOXYBENZENE
     Indication: Abdominal pain
     Route: 048
     Dates: start: 2017
  9. PHLOROGLUCINOL\1,3,5-TRIMETHOXYBENZENE [Suspect]
     Active Substance: PHLOROGLUCINOL\1,3,5-TRIMETHOXYBENZENE
     Route: 048
     Dates: start: 2017, end: 20170509
  10. SODIUM ALGINATE [Suspect]
     Active Substance: SODIUM ALGINATE
     Indication: Gastrooesophageal reflux disease
     Route: 048
     Dates: start: 2017
  11. AMIKACIN [Suspect]
     Active Substance: AMIKACIN
     Indication: Product used for unknown indication
     Route: 042
     Dates: start: 20170403, end: 20170408
  12. AMIKACIN [Suspect]
     Active Substance: AMIKACIN
     Route: 042
     Dates: start: 20180421, end: 20180424
  13. AMIKACIN [Suspect]
     Active Substance: AMIKACIN
     Route: 042
     Dates: start: 20170526, end: 20170529
  14. AMIKACIN [Suspect]
     Active Substance: AMIKACIN
     Route: 042
     Dates: start: 20170607, end: 20170610
  15. AMINO ACIDS\DEXTROSE\ELECTROLYTES NOS\SOYBEAN OIL [Suspect]
     Active Substance: AMINO ACIDS\DEXTROSE\ELECTROLYTES NOS\SOYBEAN OIL
     Indication: Parenteral nutrition
     Route: 042
     Dates: start: 2017, end: 2017
  16. CANCIDAS [Suspect]
     Active Substance: CASPOFUNGIN ACETATE
     Indication: Fungal infection
     Route: 042
     Dates: start: 201703
  17. ACETAMINOPHEN [Suspect]
     Active Substance: ACETAMINOPHEN
     Indication: Pain
     Route: 048
     Dates: start: 2017
  18. SODIUM ALGINATE [Suspect]
     Active Substance: SODIUM ALGINATE
     Indication: Gastrooesophageal reflux disease
     Route: 048
     Dates: start: 2017
  19. URAPIDIL [Suspect]
     Active Substance: URAPIDIL
     Indication: Hypertension
     Route: 042
     Dates: start: 201703, end: 20170330
  20. NEORAL [Suspect]
     Active Substance: CYCLOSPORINE
     Indication: Prophylaxis against transplant rejection
     Route: 048
     Dates: start: 2017
  21. NEORAL [Suspect]
     Active Substance: CYCLOSPORINE
     Route: 048
  22. MAGNESIUM ALGINATE [Suspect]
     Active Substance: MAGNESIUM ALGINATE
     Indication: Gastrooesophageal reflux disease
     Route: 048
     Dates: start: 2017
  23. DITROPAN [Suspect]
     Active Substance: OXYBUTYNIN CHLORIDE
     Indication: Product used for unknown indication
     Dosage: 5 MG,TID
     Route: 048
     Dates: start: 2017, end: 20170509
  24. SOLU-MEDROL [Suspect]
     Active Substance: METHYLPREDNISOLONE SODIUM SUCCINATE
     Indication: Product used for unknown indication
     Route: 042
     Dates: start: 2017, end: 20170609
  25. ZERBAXA [Suspect]
     Active Substance: CEFTOLOZANE SULFATE\TAZOBACTAM SODIUM
     Indication: Cellulitis
     Route: 042
     Dates: start: 20170331
  26. HYDROCORTISONE [Suspect]
     Active Substance: HYDROCORTISONE
     Indication: Product used for unknown indication
     Dosage: UNK
     Route: 065
  27. URSODIOL [Suspect]
     Active Substance: URSODIOL
     Indication: Product used for unknown indication
     Route: 048
     Dates: start: 20170331
  28. EUPANTOL [Suspect]
     Active Substance: PANTOPRAZOLE SODIUM
     Indication: Gastrooesophageal reflux disease
     Route: 042
     Dates: start: 2017
  29. CILASTATIN SODIUM\IMIPENEM [Suspect]
     Active Substance: CILASTATIN SODIUM\IMIPENEM
     Indication: Product used for unknown indication
     Route: 042
     Dates: start: 201703, end: 20170403
  30. RACECADOTRIL [Suspect]
     Active Substance: RACECADOTRIL
     Indication: Diarrhoea
     Route: 048
     Dates: start: 2017
  31. KEPPRA [Suspect]
     Active Substance: LEVETIRACETAM
     Indication: Epilepsy
     Route: 048
     Dates: start: 20170422
  32. YDRALBUM [Concomitant]
     Active Substance: ALBUMIN HUMAN
  33. ATOVAQUONE [Concomitant]
     Active Substance: ATOVAQUONE
     Route: 065
     Dates: start: 20170526
  34. RAMIPRIL [Concomitant]
     Active Substance: RAMIPRIL
     Indication: Prophylaxis against transplant rejection
     Dates: start: 20170331
  35. AMLODIPINE BESYLATE [Concomitant]
     Active Substance: AMLODIPINE BESYLATE
     Indication: Epilepsy
     Route: 048
     Dates: start: 20170526
  36. TARGOCID [Concomitant]
     Active Substance: TEICOPLANIN
     Route: 065
     Dates: start: 20170524, end: 20170529
  37. BISOPROLOL [Concomitant]
     Active Substance: BISOPROLOL
     Indication: Prophylaxis
     Route: 048
     Dates: start: 20170531

REACTIONS (5)
  - Confusional state [Not Recovered/Not Resolved]
  - Pancytopenia [Recovered/Resolved]
  - Amnesia [Not Recovered/Not Resolved]
  - Pneumocystis jirovecii pneumonia [Unknown]
  - Cellulitis [Unknown]

NARRATIVE: CASE EVENT DATE: 20170329
